FAERS Safety Report 5869909-6 (Version None)
Quarter: 2008Q3

REPORT INFORMATION
  Report Type: 
  Country: None (occurrence: None)
  Receive Date: 20080904
  Receipt Date: 20080825
  Transmission Date: 20090109
  Serious: Yes (Hospitalization, Disabling)
  Sender: FDA-Public Use
  Company Number: PHBS2008US05553

PATIENT
  Age: 22 Year
  Sex: Male

DRUGS (10)
  1. TOBRAMYCIN [Suspect]
     Indication: CYSTIC FIBROSIS
     Dosage: 300 MG, BID
  2. TOBRAMYCIN [Suspect]
     Dosage: 560 MG/DAY
     Route: 042
  3. PIPERACILLIN SODIUM AND TAZOBACTAM SODIUM [Suspect]
     Dosage: 4.5 G, Q6H
     Route: 042
  4. VANCOMYCIN HYDROCHLORIDE [Suspect]
     Dosage: 1 G, Q8H
  5. ULTRASE MT [Concomitant]
     Dosage: 3 CAPSULES WITH EACH MEAL
     Route: 048
  6. ADEK [Concomitant]
     Dosage: 1 DF, BID
     Route: 048
  7. ALBUTEROL [Concomitant]
  8. PULMOZYME [Concomitant]
  9. IPRATROPIUM BROMIDE [Concomitant]
  10. COLISTIMETHATE SODIUM [Concomitant]

REACTIONS (11)
  - CYSTIC FIBROSIS LUNG [None]
  - GRIP STRENGTH DECREASED [None]
  - HYPERTONIA [None]
  - HYPOAESTHESIA [None]
  - JOINT RANGE OF MOTION DECREASED [None]
  - MUSCULAR WEAKNESS [None]
  - MUSCULOSKELETAL PAIN [None]
  - MUSCULOSKELETAL STIFFNESS [None]
  - NEURALGIC AMYOTROPHY [None]
  - PAIN [None]
  - PARAESTHESIA [None]
